FAERS Safety Report 7472585-2 (Version None)
Quarter: 2011Q2

REPORT INFORMATION
  Report Type: 
  Country: None (occurrence: None)
  Receive Date: 20110511
  Receipt Date: 20110509
  Transmission Date: 20111010
  Serious: Yes (Death, Hospitalization, Other)
  Sender: FDA-Public Use
  Company Number: IE-NAPPMUNDI-GBR-2011-0008165

PATIENT
  Age: 58 Year
  Sex: Male

DRUGS (11)
  1. BUPRENORPHINE [Suspect]
     Indication: PAIN
     Dosage: 25 MCG, Q1H
     Route: 062
  2. PREGABALIN [Concomitant]
     Dosage: 100 MG, Q8H
     Route: 048
  3. ASPIRIN [Concomitant]
  4. FLUCLOXACILLIN [Concomitant]
     Indication: NEUROPATHIC ULCER
     Dosage: 2 G, Q4H
     Route: 042
  5. FLUCLOXACILLIN [Concomitant]
     Indication: OSTEOMYELITIS
  6. ATORVASTATIN [Interacting]
     Dosage: 80 MG, DAILY
  7. RAMIPRIL [Concomitant]
  8. METRONIDAZOLE [Concomitant]
     Dosage: 500 MG, Q8H
     Route: 042
  9. ATORVASTATIN [Interacting]
     Dosage: 10 MG, DAILY
  10. FUSIDIC ACID [Concomitant]
     Dosage: 500 MG, Q8H
     Route: 042
  11. CLOPIDOGREL [Concomitant]

REACTIONS (6)
  - SEPTIC SHOCK [None]
  - CARDIAC ARREST [None]
  - RESPIRATORY FAILURE [None]
  - DRUG INTERACTION [None]
  - RHABDOMYOLYSIS [None]
  - PNEUMONIA [None]
